FAERS Safety Report 7905984-2 (Version None)
Quarter: 2011Q4

REPORT INFORMATION
  Report Type: 
  Country: None (occurrence: None)
  Receive Date: 20111110
  Receipt Date: 20111108
  Transmission Date: 20120403
  Serious: Yes (Hospitalization)
  Sender: FDA-Public Use
  Company Number: BE-AMGEN-BELSP2011043773

PATIENT
  Age: 85 Year
  Sex: Female
  Weight: 67 kg

DRUGS (2)
  1. ISOTEN [Concomitant]
     Dosage: 5 MG, UNK
     Route: 048
  2. ENBREL [Suspect]
     Indication: RHEUMATOID ARTHRITIS
     Dosage: 50 MG, WEEKLY
     Route: 058
     Dates: start: 20070101, end: 20110801

REACTIONS (3)
  - BILE DUCT STONE [None]
  - IRON DEFICIENCY ANAEMIA [None]
  - ARTHRITIS BACTERIAL [None]
